FAERS Safety Report 15362734 (Version 2)
Quarter: 2018Q4

REPORT INFORMATION
  Report Type: Report from Study
  Country: BR (occurrence: BR)
  Receive Date: 20180907
  Receipt Date: 20181113
  Transmission Date: 20190204
  Serious: Yes (Death, Hospitalization)
  Sender: FDA-Public Use
  Company Number: PHHY2018BR074792

PATIENT
  Sex: Male
  Weight: 50 kg

DRUGS (3)
  1. VOTRIENT [Suspect]
     Active Substance: PAZOPANIB HYDROCHLORIDE
     Indication: METASTATIC RENAL CELL CARCINOMA
     Dosage: 400 MG, BID
     Route: 048
     Dates: start: 20180413
  2. DECADRON [Concomitant]
     Active Substance: DEXAMETHASONE
     Indication: ALLERGIC COUGH
     Dosage: 3 DF, QD
     Route: 048
  3. VOTRIENT [Suspect]
     Active Substance: PAZOPANIB HYDROCHLORIDE
     Indication: SPINAL CORD NEOPLASM
     Dosage: 800 MG, QD
     Route: 048
     Dates: end: 201809

REACTIONS (9)
  - Metastases to lung [Fatal]
  - Feeling abnormal [Recovering/Resolving]
  - Asthenia [Recovering/Resolving]
  - Multiple organ dysfunction syndrome [Fatal]
  - Gait disturbance [Recovering/Resolving]
  - Weight decreased [Unknown]
  - Respiratory failure [Fatal]
  - Myalgia [Recovering/Resolving]
  - Eating disorder [Recovering/Resolving]
